FAERS Safety Report 8479124-8 (Version None)
Quarter: 2012Q2

REPORT INFORMATION
  Report Type: 
  Country: None (occurrence: None)
  Receive Date: 20120629
  Receipt Date: 20111012
  Transmission Date: 20120825
  Serious: Yes (Other)
  Sender: FDA-Public Use
  Company Number: US-ROCHE-1001352

PATIENT
  Sex: Male

DRUGS (3)
  1. TELAPREVIR [Suspect]
     Indication: HEPATITIS C
     Dosage: BRAND:VERTEX PHARMACEUTICALS, THERAPY 24 WEEK LONG
     Route: 065
     Dates: start: 20110819
  2. RIBAVIRIN [Suspect]
     Indication: HEPATITIS C
     Dosage: DAILY IN DIVIDED DOSES,THERAPY 24 WEEK LONG,BRAND:THREE RIVER PHARMACEUTICALS
     Route: 065
     Dates: start: 20110819
  3. PEGASYS [Suspect]
     Indication: HEPATITIS C
     Dosage: THERAPY 24 WEEK LONG
     Route: 065
     Dates: start: 20110819

REACTIONS (3)
  - CONVULSION [None]
  - VOMITING [None]
  - NAUSEA [None]
